FAERS Safety Report 6705657 (Version 16)
Quarter: 2014Q3

REPORT INFORMATION
  Report Type: Spontaneous
  Country: US (occurrence: US)
  Receive Date: 20080722
  Receipt Date: 20140725
  Transmission Date: 20150326
  Serious: Yes (Death, Hospitalization, Other)
  Sender: FDA-Public Use
  Company Number: PHEH2008US06422

PATIENT
  Sex: Female

DRUGS (21)
  1. TORADOL [Concomitant]
     Active Substance: KETOROLAC TROMETHAMINE
     Route: 030
  2. LORAZEPAM. [Concomitant]
     Active Substance: LORAZEPAM
  3. CRESTOR [Concomitant]
     Active Substance: ROSUVASTATIN CALCIUM
  4. AREDIA [Suspect]
     Active Substance: PAMIDRONATE DISODIUM
     Indication: NEOPLASM MALIGNANT
     Dosage: 90 MG, QMO
     Route: 042
     Dates: start: 200001, end: 20020606
  5. REGLAN [Concomitant]
     Active Substance: METOCLOPRAMIDE HYDROCHLORIDE
  6. DECADRON [Concomitant]
     Active Substance: DEXAMETHASONE
  7. PROZAC [Concomitant]
     Active Substance: FLUOXETINE HYDROCHLORIDE
  8. DEXAMETHASONE. [Concomitant]
     Active Substance: DEXAMETHASONE
     Dosage: 2 MG, BID
  9. FOSAMAX [Concomitant]
     Active Substance: ALENDRONATE SODIUM
  10. LASIX [Concomitant]
     Active Substance: FUROSEMIDE
  11. NORCO [Concomitant]
     Active Substance: ACETAMINOPHEN\HYDROCODONE BITARTRATE
  12. GLUCOVANCE [Concomitant]
     Active Substance: GLYBURIDE\METFORMIN HYDROCHLORIDE
  13. PROTONIX [Concomitant]
     Active Substance: PANTOPRAZOLE SODIUM
  14. HYDROCODONE [Concomitant]
     Active Substance: HYDROCODONE
  15. NEURONTIN [Concomitant]
     Active Substance: GABAPENTIN
     Dosage: 100 MG, TID
     Route: 048
  16. ZOMETA [Suspect]
     Active Substance: ZOLEDRONIC ACID
     Indication: METASTASES TO BONE
     Dosage: 4 MG, QMO
     Route: 042
     Dates: end: 20060712
  17. ZOMETA [Suspect]
     Active Substance: ZOLEDRONIC ACID
     Indication: OSTEOPOROSIS
  18. ZOFRAN [Concomitant]
     Active Substance: ONDANSETRON HYDROCHLORIDE
  19. COUMADIN [Concomitant]
     Active Substance: WARFARIN SODIUM
  20. HUMALOG MIX [Concomitant]
     Active Substance: INSULIN LISPRO
     Dosage: 60 U, BID
  21. RITALIN [Concomitant]
     Active Substance: METHYLPHENIDATE HYDROCHLORIDE

REACTIONS (110)
  - Erythema [Fatal]
  - Dehydration [Unknown]
  - Paraesthesia [Unknown]
  - Metastases to bone [Unknown]
  - Hypertension [Unknown]
  - Vocal cord paralysis [Unknown]
  - Urinary incontinence [Unknown]
  - Cerebral ischaemia [Unknown]
  - Vasogenic cerebral oedema [Unknown]
  - Gout [Unknown]
  - Dizziness [Unknown]
  - Fungal infection [Unknown]
  - Neoplasm progression [Unknown]
  - Constipation [Unknown]
  - Upper respiratory tract infection [Unknown]
  - Hypoxia [Unknown]
  - Hypercapnia [Unknown]
  - Pollakiuria [Unknown]
  - Chills [Unknown]
  - Oral pain [Fatal]
  - Exposed bone in jaw [Fatal]
  - Pain in jaw [Fatal]
  - Osteitis [Fatal]
  - Jaw fracture [Fatal]
  - Hyponatraemia [Unknown]
  - Vomiting [Unknown]
  - Stomatitis [Unknown]
  - Bronchitis [Unknown]
  - Cerebral haemorrhage [Unknown]
  - Tachycardia [Unknown]
  - Swelling [Fatal]
  - Osteomyelitis [Fatal]
  - Hypokalaemia [Unknown]
  - Metastases to spine [Unknown]
  - Depression [Unknown]
  - Pulmonary embolism [Unknown]
  - Diabetic neuropathy [Unknown]
  - Cerebral atrophy [Unknown]
  - Chest pain [Unknown]
  - Fall [Unknown]
  - Nausea [Unknown]
  - Metastases to lung [Unknown]
  - Pulmonary fibrosis [Unknown]
  - Fatigue [Unknown]
  - Asthenia [Unknown]
  - Anxiety [Fatal]
  - Abscess jaw [Fatal]
  - Oral candidiasis [Unknown]
  - Cellulitis [Recovered/Resolved]
  - Osteoarthritis [Unknown]
  - Acquired immunodeficiency syndrome [Unknown]
  - Irritability [Unknown]
  - Back pain [Unknown]
  - General physical health deterioration [Fatal]
  - Injury [Fatal]
  - Insomnia [Unknown]
  - Dyslipidaemia [Unknown]
  - Convulsion [Unknown]
  - Neuropathy peripheral [Recovered/Resolved]
  - Obesity [Unknown]
  - Vertigo [Unknown]
  - Dyspnoea [Unknown]
  - Acute sinusitis [Unknown]
  - Vaginal discharge [Unknown]
  - Alopecia [Unknown]
  - Liver disorder [Unknown]
  - Hiatus hernia [Unknown]
  - Lethargy [Unknown]
  - Oral discharge [Fatal]
  - Hallucination [Unknown]
  - Cerebral ventricle dilatation [Unknown]
  - Abscess [Unknown]
  - Osteonecrosis of jaw [Fatal]
  - Tooth loss [Fatal]
  - Facial pain [Fatal]
  - Breath odour [Fatal]
  - Gingival pain [Fatal]
  - Deep vein thrombosis [Unknown]
  - Gastrooesophageal reflux disease [Unknown]
  - Depressed level of consciousness [Unknown]
  - Arrhythmia [Unknown]
  - Phlebitis [Unknown]
  - Atelectasis [Unknown]
  - Rales [Unknown]
  - Cough [Unknown]
  - Pyrexia [Unknown]
  - Loose tooth [Fatal]
  - Bone swelling [Fatal]
  - Confusional state [Recovered/Resolved]
  - Hypoaesthesia [Unknown]
  - Metastases to central nervous system [Unknown]
  - Metastases to lymph nodes [Unknown]
  - Haemorrhagic diathesis [Unknown]
  - Mental status changes [Unknown]
  - Failure to thrive [Unknown]
  - HIV infection [Unknown]
  - Polyuria [Unknown]
  - Peripheral swelling [Unknown]
  - Headache [Unknown]
  - Vision blurred [Unknown]
  - Myalgia [Unknown]
  - Urinary tract infection [Unknown]
  - Hyperglycaemia [Unknown]
  - Hyperlipidaemia [Unknown]
  - Pleural fibrosis [Unknown]
  - Dysphagia [Unknown]
  - Dysuria [Unknown]
  - Leukocytosis [Unknown]
  - Abdominal pain [Unknown]
  - Pain in extremity [Unknown]
